FAERS Safety Report 7729520-9 (Version None)
Quarter: 2011Q3

REPORT INFORMATION
  Report Type: 
  Country: None (occurrence: None)
  Receive Date: 20110906
  Receipt Date: 20110826
  Transmission Date: 20111222
  Serious: Yes (Hospitalization)
  Sender: FDA-Public Use
  Company Number: JP-SANOFI-AVENTIS-2011SA056073

PATIENT
  Age: 63 Year
  Sex: Male
  Weight: 60 kg

DRUGS (11)
  1. LEUCOVORIN CALCIUM [Concomitant]
     Indication: LARGE INTESTINE CARCINOMA
     Route: 041
     Dates: end: 20110712
  2. OXYCONTIN [Concomitant]
     Route: 048
  3. FAMOTIDINE [Concomitant]
     Route: 048
  4. KYTRIL [Concomitant]
     Indication: PREMEDICATION
     Route: 041
     Dates: end: 20110712
  5. CILOSTAZOL [Concomitant]
     Route: 048
  6. EFUDEX [Concomitant]
     Indication: LARGE INTESTINE CARCINOMA
     Dosage: ROUTE: BIV/DR
  7. OXALIPLATIN [Suspect]
     Indication: LARGE INTESTINE CARCINOMA
     Route: 041
     Dates: end: 20110712
  8. ANPLAG [Concomitant]
     Route: 048
  9. BERAPROST SODIUM [Concomitant]
     Route: 048
  10. AMINOPHYLLIN TAB [Concomitant]
     Indication: ASTHMA
     Route: 041
     Dates: start: 20110712, end: 20110712
  11. MUCOSTA [Concomitant]
     Route: 048

REACTIONS (7)
  - CHILLS [None]
  - HAEMATURIA [None]
  - PYREXIA [None]
  - BLOOD PRESSURE DECREASED [None]
  - ABDOMINAL PAIN UPPER [None]
  - PAIN [None]
  - FEELING HOT [None]
